FAERS Safety Report 4843360-X (Version None)
Quarter: 2005Q4

REPORT INFORMATION
  Report Type: 
  Country: None (occurrence: None)
  Receive Date: 20051201
  Receipt Date: 20051123
  Transmission Date: 20060501
  Serious: Yes (Other)
  Sender: FDA-Public Use
  Company Number: ES-MERCK-0511ESP00035

PATIENT
  Sex: Male

DRUGS (5)
  1. VIOXX [Suspect]
     Route: 048
     Dates: start: 20011004, end: 20050101
  2. PREDNISONE [Concomitant]
     Route: 065
     Dates: start: 20010101
  3. FOSAMAX [Concomitant]
     Route: 048
     Dates: start: 20010101
  4. AMITRIPTYLINE HYDROCHLORIDE [Concomitant]
     Route: 065
     Dates: start: 20010101
  5. SODIUM (UNSPECIFIED) [Concomitant]
     Route: 065
     Dates: start: 20010101

REACTIONS (5)
  - ADVERSE EVENT [None]
  - ASTHENIA [None]
  - CHEST PAIN [None]
  - ISCHAEMIC CARDIOMYOPATHY [None]
  - SPINAL COLUMN STENOSIS [None]
